FAERS Safety Report 8360298-4 (Version None)
Quarter: 2012Q1

REPORT INFORMATION
  Report Type: 
  Country: None (occurrence: None)
  Receive Date: 20120323
  Receipt Date: 20111219
  Transmission Date: 20120608
  Serious: Yes (Other)
  Sender: FDA-Public Use
  Company Number: 163-21880-11091442

PATIENT
  Age: 84 Year
  Sex: Male

DRUGS (6)
  1. REVLIMID [Suspect]
     Indication: MYELODYSPLASTIC SYNDROME
     Dosage: 10 MG, DAILY X 21 DAYS, THEN 7 DAYS OFF, PO
     Route: 048
     Dates: start: 20110901, end: 20110909
  2. ABILIFY [Concomitant]
  3. ASPIRIN [Concomitant]
  4. COREG [Concomitant]
  5. NORVASC [Concomitant]
  6. LANTUS [Concomitant]

REACTIONS (5)
  - TONGUE BITING [None]
  - CONFUSIONAL STATE [None]
  - DYSKINESIA [None]
  - MUCOSAL INFLAMMATION [None]
  - AMNESIA [None]
